FAERS Safety Report 11001121 (Version 1)
Quarter: 2015Q2

REPORT INFORMATION
  Report Type: Spontaneous
  Country: US (occurrence: US)
  Receive Date: 20150408
  Receipt Date: 20150408
  Transmission Date: 20150821
  Serious: No
  Sender: FDA-Public Use
  Company Number: US-SA-2015SA015214

PATIENT
  Age: 69 Year
  Sex: Female

DRUGS (2)
  1. ALLIUM SATIVUM EXTRACT [Interacting]
     Active Substance: DIETARY SUPPLEMENT
     Route: 065
  2. ALLEGRA [Suspect]
     Active Substance: FEXOFENADINE HYDROCHLORIDE
     Dosage: FOR A YEAR
     Route: 048

REACTIONS (7)
  - Asthenia [Unknown]
  - Anxiety [Unknown]
  - Dizziness [Unknown]
  - Pruritus [Unknown]
  - Chest discomfort [Unknown]
  - Chest pain [Unknown]
  - Burning sensation [Unknown]
